FAERS Safety Report 8480718-4 (Version None)
Quarter: 2012Q3

REPORT INFORMATION
  Report Type: 
  Country: None (occurrence: None)
  Receive Date: 20120702
  Receipt Date: 20120620
  Transmission Date: 20120928
  Serious: Yes (Life-Threatening, Hospitalization)
  Sender: FDA-Public Use
  Company Number: FR-BRISTOL-MYERS SQUIBB COMPANY-16701328

PATIENT
  Age: 59 Year
  Sex: Male

DRUGS (6)
  1. BACTRIM DS [Suspect]
     Dosage: 1DF=1 TAB
     Route: 048
     Dates: start: 20120310
  2. ACETAMINOPHEN [Concomitant]
  3. SCOPOLAMINE [Concomitant]
  4. DURAGESIC-100 [Concomitant]
     Dosage: 1DF =75 UNITS NOS
  5. COUMADIN [Suspect]
     Route: 048
     Dates: end: 20120315
  6. ZOLPIDEM TARTRATE [Concomitant]

REACTIONS (6)
  - INTERNATIONAL NORMALISED RATIO INCREASED [None]
  - MELAENA [None]
  - UPPER GASTROINTESTINAL HAEMORRHAGE [None]
  - PNEUMONIA [None]
  - SHOCK HAEMORRHAGIC [None]
  - OVERDOSE [None]
